FAERS Safety Report 16169318 (Version 1)
Quarter: 2019Q2

REPORT INFORMATION
  Report Type: Report from Study
  Country: HU (occurrence: HU)
  Receive Date: 20190408
  Receipt Date: 20190408
  Transmission Date: 20190711
  Serious: Yes (Hospitalization)
  Sender: FDA-Public Use
  Company Number: HU-TAIHO ONCOLOGY  INC-IM-2019-00181

PATIENT
  Age: 56 Year
  Sex: Male
  Weight: 101 kg

DRUGS (7)
  1. LONSURF [Suspect]
     Active Substance: TIPIRACIL HYDROCHLORIDE\TRIFLURIDINE
     Dosage: 75 MG (35 MG/M2), BID, ON DAYS 1-5 OF EACH 14-DAY CYCLE
     Route: 048
     Dates: start: 20190130, end: 20190306
  2. OXALIPLATIN. [Suspect]
     Active Substance: OXALIPLATIN
     Dosage: 185 MG (85 MG/M2), ON DAY 1 OF EACH 14-DAY CYCLE
     Route: 042
     Dates: start: 20190130
  3. BEVACIZUMAB. [Suspect]
     Active Substance: BEVACIZUMAB
     Dosage: 500 MG (5 MG/KG), ON DAY 1OF EACH 14 DAY CYCLE
     Route: 042
     Dates: start: 20190130, end: 20190213
  4. LONSURF [Suspect]
     Active Substance: TIPIRACIL HYDROCHLORIDE\TRIFLURIDINE
     Indication: COLORECTAL CANCER METASTATIC
     Dosage: 75 MG (35 MG/M2), BID, ON DAYS 1-5 OF EACH 14-DAY CYCLE
     Route: 048
     Dates: start: 20181003, end: 20190113
  5. OXALIPLATIN. [Suspect]
     Active Substance: OXALIPLATIN
     Indication: COLORECTAL CANCER METASTATIC
     Dosage: 185 MG (85 MG/M2), ON DAY 1 OF EACH 14-DAY CYCLE
     Route: 042
     Dates: start: 20181003, end: 20190109
  6. BEVACIZUMAB. [Suspect]
     Active Substance: BEVACIZUMAB
     Indication: COLORECTAL CANCER METASTATIC
     Dosage: 500 MG (5 MG/KG), ON DAY 1OF EACH 14 DAY CYCLE
     Route: 042
     Dates: start: 20181003, end: 20190127
  7. CATAFLAM [Concomitant]
     Active Substance: DICLOFENAC POTASSIUM
     Indication: BACK PAIN
     Dosage: 50 MG, PRN
     Route: 048
     Dates: start: 2016

REACTIONS (1)
  - Stoma site haemorrhage [Recovered/Resolved]

NARRATIVE: CASE EVENT DATE: 20190309
